FAERS Safety Report 9933578 (Version 2)
Quarter: 2014Q1

REPORT INFORMATION
  Report Type: Report from Study
  Country: US (occurrence: US)
  Receive Date: 20140228
  Receipt Date: 20140228
  Transmission Date: 20141002
  Serious: No
  Sender: FDA-Public Use
  Company Number: US-MYLANLABS-2013S1025092

PATIENT
  Age: 59 Year
  Sex: Male
  Weight: 98.2 kg

DRUGS (5)
  1. AMNESTEEM CAPSULES [Suspect]
     Indication: ACNE CYSTIC
     Route: 048
     Dates: start: 20130826, end: 20131010
  2. AMNESTEEM CAPSULES [Suspect]
     Indication: ROSACEA
     Route: 048
     Dates: start: 20130826, end: 20131010
  3. CLARAVIS [Suspect]
  4. OMEPRAZOLE [Concomitant]
     Route: 048
  5. TRAMADOL [Concomitant]

REACTIONS (2)
  - Arthralgia [Recovered/Resolved]
  - Mobility decreased [Recovered/Resolved]
